FAERS Safety Report 6062284-6 (Version None)
Quarter: 2009Q1

REPORT INFORMATION
  Report Type: 
  Country: None (occurrence: None)
  Receive Date: 20090203
  Receipt Date: 20090130
  Transmission Date: 20090719
  Serious: Yes (Death, Hospitalization)
  Sender: FDA-Public Use
  Company Number: US-BRISTOL-MYERS SQUIBB COMPANY-14489041

PATIENT
  Age: 63 Year
  Sex: Male
  Weight: 79 kg

DRUGS (4)
  1. CETUXIMAB [Suspect]
     Indication: COLON CANCER
     Dosage: START 29DEC08;CYCLE1(2WEEKS)400MG/M2 2H IV D1, 250MG/M2 1H IV D8;CYCLE2-12=250MG/M2 1H IV ON D1 + D8
     Route: 042
     Dates: start: 20090105, end: 20090105
  2. FLUOROURACIL [Suspect]
     Indication: COLON CANCER
     Dosage: ON 29DEC08; CYCLE1 + CYCLE2-12(2WEEKS) =400MG/M2 IVP D1, 2400MG/M2 1H CIV 46-48H;
     Route: 042
     Dates: start: 20081231, end: 20081231
  3. LEUCOVORIN CALCIUM [Suspect]
     Indication: COLON CANCER
     Dosage: START 29DEC08; CYCLE1 + CYCLE2-12(2WEEKS) =400MG/M2 IV OVER 120 MIN ON D1;
     Route: 042
     Dates: start: 20081229, end: 20081229
  4. OXALIPLATIN [Suspect]
     Indication: COLON CANCER
     Dosage: START 29DEC08;  CYCLE1 + CYCLE2-12(2WEEKS) =85MG/M2 IV OVER 120 MIN ON D1;
     Route: 042
     Dates: start: 20081229, end: 20081229

REACTIONS (4)
  - BACTERIAL SEPSIS [None]
  - DEHYDRATION [None]
  - LYMPHOPENIA [None]
  - THROMBOCYTOPENIA [None]
